FAERS Safety Report 7235709-8 (Version None)
Quarter: 2011Q1

REPORT INFORMATION
  Report Type: 
  Country: None (occurrence: None)
  Receive Date: 20110120
  Receipt Date: 20110112
  Transmission Date: 20110831
  Serious: Yes (Other)
  Sender: FDA-Public Use
  Company Number: PHHY2010US78716

PATIENT
  Sex: Female

DRUGS (2)
  1. ARIMIDEX [Suspect]
  2. FEMARA [Suspect]
     Indication: BREAST CANCER
     Dosage: 2.5 MG, QD
     Route: 048
     Dates: start: 20100928, end: 20101001

REACTIONS (2)
  - BONE NEOPLASM MALIGNANT [None]
  - BONE PAIN [None]
